FAERS Safety Report 5116849-6 (Version None)
Quarter: 2006Q3

REPORT INFORMATION
  Report Type: 
  Country: None (occurrence: None)
  Receive Date: 20060925
  Receipt Date: 20060911
  Transmission Date: 20061208
  Serious: Yes (Other)
  Sender: FDA-Public Use
  Company Number: 2006109520

PATIENT
  Sex: Male

DRUGS (3)
  1. SUTENT [Suspect]
     Indication: MENINGIOMA
  2. STATINS (HMG COA REDUCTASE INHIBITORS) [Concomitant]
  3. ANTI-DIABETICS [Concomitant]

REACTIONS (6)
  - DISEASE PROGRESSION [None]
  - HYPERBILIRUBINAEMIA [None]
  - HYPERTENSION [None]
  - JAUNDICE [None]
  - THERAPY NON-RESPONDER [None]
  - THROMBOCYTOPENIA [None]
